FAERS Safety Report 9401810 (Version 1)
Quarter: 2013Q3

REPORT INFORMATION
  Report Type: Spontaneous
  Country: US (occurrence: US)
  Receive Date: 20130716
  Receipt Date: 20130716
  Transmission Date: 20140515
  Serious: Yes (Other)
  Sender: FDA-Public Use
  Company Number: US-JNJFOC-20130614043

PATIENT
  Sex: Male
  Weight: 71.22 kg

DRUGS (3)
  1. INVOKANA [Suspect]
     Indication: TYPE 2 DIABETES MELLITUS
     Route: 048
  2. INVOKANA [Suspect]
     Indication: TYPE 2 DIABETES MELLITUS
     Route: 048
  3. CIPRO [Interacting]
     Indication: ANTIBIOTIC THERAPY
     Route: 048
     Dates: start: 20130601, end: 20130610

REACTIONS (3)
  - Hypoglycaemia [Recovered/Resolved]
  - Kidney infection [Unknown]
  - Drug interaction [Unknown]
